FAERS Safety Report 9140100 (Version 6)
Quarter: 2013Q4

REPORT INFORMATION
  Report Type: Report from Study
  Country: NO (occurrence: NO)
  Receive Date: 20130305
  Receipt Date: 20131018
  Transmission Date: 20140711
  Serious: Yes (Hospitalization, Other)
  Sender: FDA-Public Use
  Company Number: NO-ASTRAZENECA-2013SE14193

PATIENT
  Age: 31515 Day
  Sex: Female

DRUGS (13)
  1. STUDY PROCEDURE [Suspect]
     Indication: CORONARY ARTERY DISEASE
     Route: 065
  2. AZD6140 [Suspect]
     Indication: CORONARY ARTERY DISEASE
     Route: 048
     Dates: start: 20110606, end: 20120326
  3. AZD6140 [Suspect]
     Indication: CORONARY ARTERY DISEASE
     Dosage: MODIFIED STUDY TREATMENT
     Route: 048
     Dates: start: 20120508, end: 20120915
  4. AZD6140 [Suspect]
     Indication: CORONARY ARTERY DISEASE
     Route: 048
     Dates: start: 20121129
  5. PLACEBO [Suspect]
     Indication: ACUTE CORONARY SYNDROME
     Route: 048
     Dates: start: 20120508, end: 20120915
  6. ASPIRIN [Suspect]
     Route: 048
  7. SELOZOK [Suspect]
     Indication: CORONARY ARTERY DISEASE
     Route: 048
     Dates: end: 20120917
  8. SELOZOK [Suspect]
     Indication: HYPERTENSION
     Route: 048
     Dates: end: 20120917
  9. HEPARIN [Suspect]
     Route: 065
  10. DETRUSITOL [Concomitant]
     Indication: URGE INCONTINENCE
     Route: 048
  11. SIMVATATIN [Concomitant]
     Indication: CORONARY ARTERY DISEASE
     Route: 048
  12. LANZOPRAZOL [Concomitant]
     Indication: GASTRITIS
     Route: 048
  13. ARTHROTEC [Concomitant]
     Indication: OSTEOARTHRITIS
     Route: 048

REACTIONS (3)
  - Post procedural haematoma [Recovered/Resolved]
  - Microcytic anaemia [Recovered/Resolved]
  - Atrioventricular block [Recovered/Resolved]
